FAERS Safety Report 24593274 (Version 1)
Quarter: 2024Q4

REPORT INFORMATION
  Report Type: Spontaneous
  Country: US (occurrence: None)
  Receive Date: 20241107
  Receipt Date: 20241107
  Transmission Date: 20250114
  Serious: Yes (Death)
  Sender: Public
  Company Number: None

PATIENT
  Sex: Female

DRUGS (11)
  1. LENALIDOMIDE [Suspect]
     Active Substance: LENALIDOMIDE
     Indication: Plasma protein metabolism disorder
     Dosage: OTHER FREQUENCY : DAILY FOR 14 DAYS, THEN STOP FOR 7 DAYS;?
     Route: 048
     Dates: start: 20241018, end: 20241023
  2. ACETAMINOPHEN [Concomitant]
     Active Substance: ACETAMINOPHEN
  3. ASPIRIN [Concomitant]
     Active Substance: ASPIRIN
  4. DULOXETINE [Concomitant]
     Active Substance: DULOXETINE
  5. EUCERIN ORIG CRE HEALING [Concomitant]
  6. FERROUS SULFATE [Concomitant]
     Active Substance: FERROUS SULFATE
  7. HYDROCORT CRE [Concomitant]
  8. KP VITAMIN D [Concomitant]
  9. LACTOBACI LLU [Concomitant]
  10. LIDOCAINE CRE [Concomitant]
  11. OMEGA-3 DHA [Concomitant]

REACTIONS (1)
  - Death [None]
